FAERS Safety Report 5693464-7 (Version None)
Quarter: 2008Q2

REPORT INFORMATION
  Report Type: 
  Country: None (occurrence: None)
  Receive Date: 20080402
  Receipt Date: 20080402
  Transmission Date: 20081010
  Serious: Yes (Hospitalization)
  Sender: FDA-Public Use
  Company Number: None

PATIENT
  Age: 34 Year
  Sex: Male
  Weight: 64 kg

DRUGS (16)
  1. PEG-INTRON [Suspect]
     Indication: HEREDITARY HAEMORRHAGIC TELANGIECTASIA
     Dosage: 64MCG WEEKELY SUBCU
     Route: 058
     Dates: start: 20071008, end: 20080331
  2. AMOXICILLIN [Concomitant]
  3. TEGRETOL [Concomitant]
  4. HYDROCHLOROTHIAZIDE [Concomitant]
  5. LEVOTHYROXINE SODIUM [Concomitant]
  6. FOLIC ACID [Concomitant]
  7. PHENOBARBITAL TAB [Concomitant]
  8. ACETAMINOPHEN [Concomitant]
  9. DIPHENHYDRAMINE [Concomitant]
  10. PHENYLEPHRINE [Concomitant]
  11. FEXOFENADINE [Concomitant]
  12. FERROUS SULFATE TAB [Concomitant]
  13. MUCINEX [Concomitant]
  14. AMBIEN [Concomitant]
  15. VANCOMYCIN [Concomitant]
  16. FLAGYL [Concomitant]

REACTIONS (3)
  - ABSCESS [None]
  - HEADACHE [None]
  - PYREXIA [None]
